FAERS Safety Report 11071269 (Version 1)
Quarter: 2015Q2

REPORT INFORMATION
  Report Type: Spontaneous
  Country: US (occurrence: None)
  Receive Date: 20150427
  Receipt Date: 20150427
  Transmission Date: 20150821
  Serious: Yes (Hospitalization)
  Sender: FDA-Public Use
  Company Number: None

PATIENT
  Age: 60 Year
  Sex: Male
  Weight: 51.7 kg

DRUGS (2)
  1. VANCOMYCIN [Suspect]
     Active Substance: VANCOMYCIN
     Indication: WOUND DEHISCENCE
     Route: 042
     Dates: start: 20150311, end: 20150401
  2. CEFEPIME [Suspect]
     Active Substance: CEFEPIME\CEFEPIME HYDROCHLORIDE
     Indication: WOUND DEHISCENCE
     Route: 042
     Dates: start: 20150311, end: 20150403

REACTIONS (1)
  - Leukopenia [None]

NARRATIVE: CASE EVENT DATE: 20150331
